FAERS Safety Report 15792636 (Version 1)
Quarter: 2019Q1

REPORT INFORMATION
  Report Type: Other
  Country: CN (occurrence: CN)
  Receive Date: 20190107
  Receipt Date: 20190107
  Transmission Date: 20190417
  Serious: Yes (Hospitalization, Other)
  Sender: FDA-Public Use
  Company Number: CN-DEXPHARM-20180999

PATIENT
  Age: 62 Year
  Sex: Female

DRUGS (5)
  1. ANISODAMINE [Suspect]
     Active Substance: ANISODAMINE
  2. TCM PURGATIVE [Suspect]
     Active Substance: HERBALS\HOMEOPATHICS
     Indication: GASTRIC DISORDER
     Dosage: 1 DOSE PER DAY, DIVIDED INTO 2 DOSES
  3. DICLOFENAC [Suspect]
     Active Substance: DICLOFENAC
  4. OMEPRAZOLE. [Suspect]
     Active Substance: OMEPRAZOLE
     Dosage: 20 MG EACH TIME, TWICE DAILY
     Route: 048
  5. DOMPERIDONE [Suspect]
     Active Substance: DOMPERIDONE

REACTIONS (6)
  - Drug ineffective [Recovered/Resolved]
  - Venous aneurysm [Recovered/Resolved]
  - Gastritis [Unknown]
  - Gastric ulcer haemorrhage [Recovering/Resolving]
  - Cholelithiasis [Unknown]
  - Bezoar [Recovered/Resolved]
